FAERS Safety Report 4890347-7 (Version None)
Quarter: 2005Q4

REPORT INFORMATION
  Report Type: 
  Country: None (occurrence: None)
  Receive Date: 20051220
  Receipt Date: 20050825
  Transmission Date: 20060501
  Serious: Yes (Other)
  Sender: FDA-Public Use
  Company Number: 407780

PATIENT
  Age: 43 Year
  Sex: Female
  Weight: 77.1 kg

DRUGS (6)
  1. BONIVA [Suspect]
     Indication: OSTEOPOROSIS
     Dosage: 150 MG ORAL
     Route: 048
     Dates: start: 20050603, end: 20050603
  2. CLIMARA [Concomitant]
  3. CALCIUM (CALCIUM) [Concomitant]
  4. WELLBUTRIN XL (BUPROPION) [Concomitant]
  5. MULTIVITAMIN NOS (MULTIVITAMIN NOS) [Concomitant]
  6. ZELNORM [Concomitant]

REACTIONS (9)
  - ANOREXIA [None]
  - BACK PAIN [None]
  - CHEST PAIN [None]
  - DYSPEPSIA [None]
  - GASTRITIS [None]
  - GASTROOESOPHAGEAL REFLUX DISEASE [None]
  - SALIVARY HYPERSECRETION [None]
  - THROAT TIGHTNESS [None]
  - WEIGHT DECREASED [None]
